FAERS Safety Report 5502391-7 (Version None)
Quarter: 2007Q4

REPORT INFORMATION
  Report Type: 
  Country: None (occurrence: None)
  Receive Date: 20071030
  Receipt Date: 20071018
  Transmission Date: 20080405
  Serious: Yes (Hospitalization)
  Sender: FDA-Public Use
  Company Number: DE-PFIZER INC-2007088765

PATIENT
  Sex: Female

DRUGS (5)
  1. DOXORUBICIN HYDROCHLORIDE [Suspect]
     Dosage: DAILY DOSE:37.5MG/M2-FREQ:ONCE EVERY CYCLE
     Route: 042
  2. NEULASTA [Suspect]
     Indication: CHEMOTHERAPY
     Dosage: DAILY DOSE:6MG-FREQ:ONCE EVERY CYCLE
     Route: 058
     Dates: start: 20070329, end: 20070630
  3. DOCETAXEL [Suspect]
     Dosage: DAILY DOSE:60MG/M2-FREQ:ONCE EVERY CYCLE
     Route: 042
  4. CYCLOPHOSPHAMIDE [Suspect]
     Dosage: DAILY DOSE:375MG/M2-FREQ:ONCE EVERY CYCLE
     Route: 042
  5. GRANISETRON HCL [Suspect]
     Dosage: DAILY DOSE:1MG
     Route: 042
     Dates: start: 20070329, end: 20070329

REACTIONS (2)
  - HEADACHE [None]
  - NECK PAIN [None]
